FAERS Safety Report 10034111 (Version 1)
Quarter: 2014Q1

REPORT INFORMATION
  Report Type: Spontaneous
  Country: US (occurrence: None)
  Receive Date: 20140321
  Receipt Date: 20140321
  Transmission Date: 20141002
  Serious: Yes (Death)
  Sender: FDA-Public Use
  Company Number: 2014CP000021

PATIENT
  Age: 74 Year
  Sex: Female

DRUGS (3)
  1. OFIRMEV [Suspect]
     Route: 042
  2. TYLENOL [Suspect]
     Dosage: TOTAL
     Route: 048
  3. HYDROCODONE [Concomitant]

REACTIONS (4)
  - Hepatic failure [None]
  - Hepatic ischaemia [None]
  - General physical health deterioration [None]
  - Post procedural complication [None]
